FAERS Safety Report 10907233 (Version 1)
Quarter: 2015Q1

REPORT INFORMATION
  Report Type: Spontaneous
  Country: US (occurrence: None)
  Receive Date: 20150309
  Receipt Date: 20150309
  Transmission Date: 20150721
  Serious: Yes (Hospitalization)
  Sender: FDA-Public Use
  Company Number: None

PATIENT
  Age: 78 Year
  Sex: Female
  Weight: 73.94 kg

DRUGS (2)
  1. ISOVUE [Suspect]
     Active Substance: IOPAMIDOL
     Indication: ABDOMEN SCAN
     Route: 042
     Dates: start: 20150303, end: 20150303
  2. ISOVUE [Suspect]
     Active Substance: IOPAMIDOL
     Indication: SCAN WITH CONTRAST
     Route: 042
     Dates: start: 20150303, end: 20150303

REACTIONS (1)
  - Cardio-respiratory arrest [None]

NARRATIVE: CASE EVENT DATE: 20150303
